FAERS Safety Report 17440068 (Version 4)
Quarter: 2020Q3

REPORT INFORMATION
  Report Type: Spontaneous
  Country: US (occurrence: US)
  Receive Date: 20200220
  Receipt Date: 20200922
  Transmission Date: 20201102
  Serious: Yes (Other)
  Sender: FDA-Public Use
  Company Number: US-PFIZER INC-2020074615

PATIENT
  Age: 62 Year
  Sex: Female

DRUGS (2)
  1. XELJANZ [Suspect]
     Active Substance: TOFACITINIB CITRATE
     Dosage: 5 MG
     Route: 048
     Dates: start: 2020
  2. XELJANZ [Suspect]
     Active Substance: TOFACITINIB CITRATE
     Dosage: 5 MG
     Route: 048
     Dates: start: 20190822

REACTIONS (17)
  - Memory impairment [Unknown]
  - Gastrooesophageal reflux disease [Unknown]
  - Sensitivity to weather change [Unknown]
  - Gastrointestinal disorder [Unknown]
  - Product dose omission issue [Unknown]
  - Platelet count decreased [Unknown]
  - Finger deformity [Unknown]
  - Joint stiffness [Unknown]
  - Prolapse [Unknown]
  - Blood blister [Unknown]
  - Condition aggravated [Unknown]
  - Hypoaesthesia [Unknown]
  - Arthralgia [Unknown]
  - Rheumatoid arthritis [Unknown]
  - Multiple sclerosis relapse [Unknown]
  - Sinusitis [Unknown]
  - Infection [Unknown]

NARRATIVE: CASE EVENT DATE: 2019
